FAERS Safety Report 9897782 (Version 3)
Quarter: 2014Q1

REPORT INFORMATION
  Report Type: Spontaneous
  Country: CN (occurrence: CN)
  Receive Date: 20140214
  Receipt Date: 20140225
  Transmission Date: 20141002
  Serious: Yes (Other)
  Sender: FDA-Public Use
  Company Number: CN-NOVOPROD-391429

PATIENT
  Age: 35 Year
  Sex: Male
  Weight: 84 kg

DRUGS (3)
  1. NOVOMIX 30 PENFILL [Suspect]
     Indication: TYPE 2 DIABETES MELLITUS
     Dosage: 26 U, QD (14 U/MORNING + 12 U/EVENING)
     Route: 065
     Dates: start: 201204
  2. NOVOMIX 30 PENFILL [Suspect]
     Dosage: 26 U, QD (14 U/MORNING + 12 U/EVENING)
     Route: 065
  3. NOVOMIX 30 PENFILL [Suspect]
     Dosage: 28 U, QD
     Route: 065
     Dates: end: 201307

REACTIONS (1)
  - Retinopathy [Not Recovered/Not Resolved]
